FAERS Safety Report 11699108 (Version 1)
Quarter: 2015Q4

REPORT INFORMATION
  Report Type: Report from Study
  Country: GB (occurrence: GB)
  Receive Date: 20151104
  Receipt Date: 20151104
  Transmission Date: 20160304
  Serious: Yes (Other)
  Sender: FDA-Public Use
  Company Number: GB-ASTRAZENECA-2014SE68913

PATIENT
  Age: 27735 Day
  Sex: Male

DRUGS (2)
  1. GEMCITABINE [Suspect]
     Active Substance: GEMCITABINE\GEMCITABINE HYDROCHLORIDE
     Indication: PROSTATE CANCER
     Dosage: 1748 MG WEEKLY FOR 7 WEEKS, FOLLOWED BY 1 WEEK BREAK, 3 WEEKS ADMINSTRATION, 1 WEEK BREAK
     Route: 042
     Dates: start: 20130715
  2. VANDETANIB. [Suspect]
     Active Substance: VANDETANIB
     Indication: PROSTATE CANCER
     Route: 048
     Dates: start: 20130715

REACTIONS (1)
  - Bronchitis [Recovered/Resolved]

NARRATIVE: CASE EVENT DATE: 20140126
